FAERS Safety Report 6954928-9 (Version None)
Quarter: 2010Q3

REPORT INFORMATION
  Report Type: 
  Country: None (occurrence: None)
  Receive Date: 20100830
  Receipt Date: 20100825
  Transmission Date: 20110219
  Serious: Yes (Death)
  Sender: FDA-Public Use
  Company Number: PHHY2010US29969

PATIENT
  Sex: Male

DRUGS (3)
  1. ZOMETA [Suspect]
  2. MORPHINE [Suspect]
     Indication: PAIN
     Dosage: UNK
  3. CHEMOTHERAPEUTICS [Concomitant]

REACTIONS (2)
  - LUNG NEOPLASM MALIGNANT [None]
  - PAIN [None]
